FAERS Safety Report 6936278-X (Version None)
Quarter: 2010Q3

REPORT INFORMATION
  Report Type: 
  Country: None (occurrence: None)
  Receive Date: 20100823
  Receipt Date: 20100809
  Transmission Date: 20110219
  Serious: Yes (Death, Hospitalization)
  Sender: FDA-Public Use
  Company Number: NL-JNJFOC-20100705174

PATIENT
  Age: 77 Year
  Sex: Male

DRUGS (7)
  1. REOPRO [Suspect]
     Indication: ACUTE MYOCARDIAL INFARCTION
     Route: 065
  2. REOPRO [Suspect]
     Indication: PERCUTANEOUS CORONARY INTERVENTION
     Route: 065
  3. PRASUGREL [Suspect]
     Indication: ACUTE MYOCARDIAL INFARCTION
     Dosage: LOADING DOSE @00:00
  4. PRASUGREL [Suspect]
     Indication: PERCUTANEOUS CORONARY INTERVENTION
     Dosage: LOADING DOSE @00:00
  5. FONDAPARINUX SODIUM [Concomitant]
     Indication: PRODUCT USED FOR UNKNOWN INDICATION
  6. CLOPIDOGREL [Concomitant]
     Indication: PERCUTANEOUS CORONARY INTERVENTION
  7. ASPIRIN [Concomitant]
     Indication: PRODUCT USED FOR UNKNOWN INDICATION

REACTIONS (3)
  - CEREBELLAR HAEMORRHAGE [None]
  - CEREBRAL HAEMORRHAGE [None]
  - CORONARY ANGIOPLASTY [None]
